FAERS Safety Report 23800845 (Version 1)
Quarter: 2024Q2

REPORT INFORMATION
  Report Type: Spontaneous
  Country: NO (occurrence: NO)
  Receive Date: 20240430
  Receipt Date: 20240430
  Transmission Date: 20240716
  Serious: Yes (Hospitalization)
  Sender: FDA-Public Use
  Company Number: None

PATIENT
  Age: 32 Year
  Sex: Male

DRUGS (10)
  1. VENLAFAXINE HYDROCHLORIDE [Interacting]
     Active Substance: VENLAFAXINE HYDROCHLORIDE
     Indication: Migraine prophylaxis
     Dosage: 75 MILLIGRAM, QD (CONTINUED USE OF MEDICINAL PRODUCT)
     Route: 048
     Dates: start: 20230809
  2. VENLAFAXINE HYDROCHLORIDE [Interacting]
     Active Substance: VENLAFAXINE HYDROCHLORIDE
     Indication: Anxiety
  3. LEVOTHYROXINE SODIUM [Interacting]
     Active Substance: LEVOTHYROXINE SODIUM
     Indication: Hypothyroidism
     Dosage: 25 MICROGRAM, QD
     Route: 048
     Dates: start: 20240117, end: 20240228
  4. Folsyre orifarm [Concomitant]
     Dosage: 1 MILLIGRAM, QD
     Route: 065
  5. Melatonin orifarm [Concomitant]
     Indication: Sleep disorder
     Dosage: UNK UNK, PRN (AS NEEDED)
     Route: 065
  6. PANTOPRAZOLE SODIUM [Concomitant]
     Active Substance: PANTOPRAZOLE SODIUM
     Indication: Oesophageal disorder
     Dosage: 40 MILLIGRAM, BID (CONTINUED USE OF MEDICINAL PRODUCT)
     Route: 065
     Dates: start: 20200407
  7. SUMATRIPTAN BLUEFISH [Concomitant]
     Dosage: UNK
     Route: 065
  8. ACETAMINOPHEN [Concomitant]
     Active Substance: ACETAMINOPHEN
     Indication: Pain
     Dosage: 500-1000 MG UP TO 3 TIMES DAILY
     Route: 065
  9. CATAFLAM [Concomitant]
     Active Substance: DICLOFENAC POTASSIUM
     Dosage: UNK UNK, PRN (AS NEEDED)
     Route: 065
  10. OXAZEPAM [Concomitant]
     Active Substance: OXAZEPAM
     Indication: Restlessness
     Dosage: UNK UNK, PRN (AS NEEDED)
     Route: 065

REACTIONS (9)
  - Head discomfort [Recovered/Resolved]
  - Infrequent bowel movements [Recovered/Resolved]
  - Drug interaction [Recovered/Resolved]
  - Restlessness [Recovered/Resolved]
  - Eructation [Recovered/Resolved]
  - Musculoskeletal stiffness [Recovered/Resolved]
  - Chest discomfort [Recovered/Resolved]
  - Abnormal dreams [Recovered/Resolved]
  - Headache [Recovered/Resolved]

NARRATIVE: CASE EVENT DATE: 20240123
